FAERS Safety Report 6535247-1 (Version None)
Quarter: 2010Q1

REPORT INFORMATION
  Report Type: 
  Country: None (occurrence: None)
  Receive Date: 20100113
  Receipt Date: 20100104
  Transmission Date: 20100710
  Serious: Yes (Hospitalization, Other)
  Sender: FDA-Public Use
  Company Number: US-ELI_LILLY_AND_COMPANY-US201001000421

PATIENT
  Age: 67 Year
  Sex: Male

DRUGS (13)
  1. FORTEO [Suspect]
     Indication: BACK INJURY
     Dosage: 20 UG, DAILY (1/D)
     Dates: start: 20090101
  2. NORCO [Concomitant]
  3. ARICEPT [Concomitant]
  4. SOMA [Concomitant]
  5. XANAX [Concomitant]
  6. LIDODERM [Concomitant]
  7. NUTRACORT [Concomitant]
  8. AIRET [Concomitant]
  9. ASPIRIN [Concomitant]
  10. SINGULAIR [Concomitant]
  11. FLOVENT [Concomitant]
  12. PROAIR HFA [Concomitant]
  13. LYRICA [Concomitant]

REACTIONS (2)
  - CONVULSION [None]
  - OFF LABEL USE [None]
